FAERS Safety Report 12370534 (Version 1)
Quarter: 2016Q2

REPORT INFORMATION
  Report Type: Spontaneous
  Country: PL (occurrence: PL)
  Receive Date: 20160516
  Receipt Date: 20160516
  Transmission Date: 20160815
  Serious: Yes (Life-Threatening)
  Sender: FDA-Public Use
  Company Number: PHHY2016PL063939

PATIENT
  Age: 30 Year
  Sex: Male

DRUGS (5)
  1. OLANZAPINE. [Suspect]
     Active Substance: OLANZAPINE
     Indication: INTENTIONAL OVERDOSE
     Route: 065
  2. ALCOHOL. [Suspect]
     Active Substance: ALCOHOL
     Indication: INTENTIONAL OVERDOSE
     Route: 065
  3. CALYPSOL [Concomitant]
     Indication: ANHEDONIA
     Route: 065
  4. ALPRAZOLAM. [Suspect]
     Active Substance: ALPRAZOLAM
     Indication: INTENTIONAL OVERDOSE
     Route: 065
  5. CLENBUTEROL [Suspect]
     Active Substance: CLENBUTEROL
     Indication: DRUG ABUSE
     Route: 065

REACTIONS (5)
  - Hypokalaemia [Recovering/Resolving]
  - Depression [Recovering/Resolving]
  - Intentional overdose [Unknown]
  - Sinus tachycardia [Recovering/Resolving]
  - Suicide attempt [Unknown]
